FAERS Safety Report 8027220-1 (Version None)
Quarter: 2012Q1

REPORT INFORMATION
  Report Type: 
  Country: None (occurrence: None)
  Receive Date: 20120104
  Receipt Date: 20111219
  Transmission Date: 20120608
  Serious: Yes (Hospitalization)
  Sender: FDA-Public Use
  Company Number: THQ2011A06307

PATIENT
  Age: 58 Year
  Sex: Male

DRUGS (16)
  1. LANSOPRAZOLE [Suspect]
  2. ALESION (EPINASTINE HYDROCHLORIDE) [Concomitant]
  3. B FLUID (ALL OTHER THERAPEUTIC PRODUCTS) [Concomitant]
  4. SULFAMETHOXAZOLE AND TRIMETHOPRIM [Concomitant]
  5. MAXIPIME [Concomitant]
  6. ANTEBATE (BETAMETHASONE BUTYRATE PROPIONATE) [Concomitant]
  7. SOLDEM 1 (GLUCOSE, SODIUM LACTATE, SODIUM CHLORIDE) [Concomitant]
  8. NIZORAL [Concomitant]
  9. ZOVIRAX [Concomitant]
  10. FUNGUARD (MICAFUNGIN SODIUM) [Concomitant]
  11. KW-0761 (ALL OTHER THERAPEUTIC PRODUCTS) [Suspect]
     Indication: ANAPLASTIC LARGE CELL LYMPHOMA T- AND NULL-CELL TYPES
     Dosage: 1 MG/KG (1 MG/KG, 1 IN 1 WK)
     Dates: start: 20110707
  12. LANSOPRAZOLE [Concomitant]
  13. NEO=MINOPHAGEN C (GLYCYRRHIZIC ACID, AMMONIUM SALT) [Concomitant]
  14. CHLOR-TRIMETON [Concomitant]
  15. AZUNOL GARGLE LIQUID (SODIUM GUALENATE) [Concomitant]
  16. CLINDAMYCIN PHOSPHATE [Concomitant]

REACTIONS (7)
  - SKIN CANDIDA [None]
  - HERPES OESOPHAGITIS [None]
  - CHEST PAIN [None]
  - TOXIC SKIN ERUPTION [None]
  - ORAL CANDIDIASIS [None]
  - BILE DUCT STONE [None]
  - BILIARY COLIC [None]
